FAERS Safety Report 11248604 (Version 2)
Quarter: 2016Q1

REPORT INFORMATION
  Report Type: Spontaneous
  Country: US (occurrence: US)
  Receive Date: 20150708
  Receipt Date: 20160122
  Transmission Date: 20160525
  Serious: Yes (Hospitalization, Other)
  Sender: FDA-Public Use
  Company Number: US-DSJP-DSU-2015-120654

PATIENT

DRUGS (2)
  1. BENICAR [Suspect]
     Active Substance: OLMESARTAN MEDOXOMIL
     Indication: PRODUCT USED FOR UNKNOWN INDICATION
     Dosage: UNK
     Dates: start: 201001, end: 201501
  2. BENICAR HCT [Suspect]
     Active Substance: HYDROCHLOROTHIAZIDE\OLMESARTAN MEDOXOMIL
     Indication: HYPERTENSION
     Dosage: 40-12.5MG, QD
     Route: 048
     Dates: start: 2002, end: 2012

REACTIONS (9)
  - Gastrointestinal injury [Unknown]
  - Malabsorption [Unknown]
  - Adenoma benign [Unknown]
  - Polyp [Unknown]
  - Rectal haemorrhage [Unknown]
  - Renal failure [Unknown]
  - Diverticulum [Unknown]
  - Gastrooesophageal reflux disease [Unknown]
  - Angiopathy [Unknown]

NARRATIVE: CASE EVENT DATE: 20120228
